FAERS Safety Report 8173728-8 (Version None)
Quarter: 2012Q1

REPORT INFORMATION
  Report Type: 
  Country: None (occurrence: None)
  Receive Date: 20120224
  Receipt Date: 20120213
  Transmission Date: 20120608
  Serious: Yes (Life-Threatening, Other)
  Sender: FDA-Public Use
  Company Number: 2012P1004867

PATIENT
  Age: 71 Year
  Sex: Male

DRUGS (4)
  1. CLOTIAZEPAM [Concomitant]
  2. PHENOBARBITAL TAB [Suspect]
     Indication: SUICIDE ATTEMPT
  3. SERTRALINE HYDROCHLORIDE [Concomitant]
  4. AMIODARONE HCL [Suspect]
     Indication: SUICIDE ATTEMPT
     Dosage: 11.4 GM;X1;PO; 4GM;X1;PO
     Route: 048

REACTIONS (2)
  - INCORRECT DOSE ADMINISTERED [None]
  - ELECTROCARDIOGRAM QT PROLONGED [None]
